FAERS Safety Report 17511405 (Version 5)
Quarter: 2020Q2

REPORT INFORMATION
  Report Type: Spontaneous
  Country: US (occurrence: US)
  Receive Date: 20200306
  Receipt Date: 20200520
  Transmission Date: 20200713
  Serious: Yes (Hospitalization)
  Sender: FDA-Public Use
  Company Number: US-LEXICON PHARMACEUTICALS, INC-20-1606-00181

PATIENT
  Age: 73 Year
  Sex: Female

DRUGS (4)
  1. SODIUM BICARBONATE. [Concomitant]
     Active Substance: SODIUM BICARBONATE
  2. OCTREOTIDE. [Concomitant]
     Active Substance: OCTREOTIDE
  3. XERMELO [Suspect]
     Active Substance: TELOTRISTAT ETHYL
     Indication: CARCINOID SYNDROME
     Dates: start: 20200210
  4. OPIUM. [Concomitant]
     Active Substance: OPIUM

REACTIONS (10)
  - Fatigue [Recovering/Resolving]
  - Blood pressure fluctuation [Recovered/Resolved]
  - Postoperative wound complication [Recovering/Resolving]
  - Blood creatinine increased [Recovering/Resolving]
  - Nausea [Recovered/Resolved]
  - Flatulence [Not Recovered/Not Resolved]
  - Weight decreased [Not Recovered/Not Resolved]
  - Pelvic abscess [Recovered/Resolved]
  - Dehydration [Recovering/Resolving]
  - Gastrointestinal stoma output abnormal [Not Recovered/Not Resolved]
